FAERS Safety Report 19876659 (Version 2)
Quarter: 2021Q4

REPORT INFORMATION
  Report Type: Report from Study
  Country: DE (occurrence: DE)
  Receive Date: 20210923
  Receipt Date: 20211006
  Transmission Date: 20220303
  Serious: Yes (Other)
  Sender: FDA-Public Use
  Company Number: NVSC2020DE213958

PATIENT
  Sex: Female
  Weight: 57 kg

DRUGS (3)
  1. KISQALI [Suspect]
     Active Substance: RIBOCICLIB
     Indication: Breast cancer metastatic
     Dosage: 600 MG, QD (SCHEMA 21 DAYS INTAKE, 7 DAYS PAUSE)
     Route: 048
     Dates: start: 20200625, end: 20210721
  2. KISQALI [Suspect]
     Active Substance: RIBOCICLIB
     Dosage: 600 MG, QD (SCHEMA 21 DAYS INTAKE, 7 DAYS PAUSE)
     Route: 048
     Dates: start: 20210819
  3. LETROZOLE [Suspect]
     Active Substance: LETROZOLE
     Indication: Breast cancer metastatic
     Dosage: 2.5 MG, QD
     Route: 048
     Dates: start: 20200625

REACTIONS (10)
  - Leukopenia [Recovered/Resolved]
  - Neutropenia [Recovered/Resolved]
  - Leukopenia [Recovered/Resolved]
  - Neutropenia [Recovered/Resolved]
  - Leukopenia [Unknown]
  - Neutropenia [Not Recovered/Not Resolved]
  - Rash [Recovered/Resolved]
  - Lacrimation increased [Recovered/Resolved]
  - Rash [Recovered/Resolved]
  - Pyrexia [Recovered/Resolved]

NARRATIVE: CASE EVENT DATE: 20200723
